FAERS Safety Report 7335968-7 (Version None)
Quarter: 2011Q1

REPORT INFORMATION
  Report Type: 
  Country: None (occurrence: None)
  Receive Date: 20110307
  Receipt Date: 20110228
  Transmission Date: 20110831
  Serious: Yes (Death)
  Sender: FDA-Public Use
  Company Number: CA-GENZYME-FLUD-1000806

PATIENT

DRUGS (14)
  1. BUSULFAN [Suspect]
     Indication: SURGICAL PRECONDITIONING
     Dosage: 3.2 MG/KG, QD ON DAYS -6 TO -2
     Route: 042
  2. METHOTREXATE [Concomitant]
     Dosage: 10 MCG/M2 ON DAYS 3, 6, 11
     Route: 042
  3. METHOTREXATE [Concomitant]
     Indication: PROPHYLAXIS AGAINST GRAFT VERSUS HOST DISEASE
     Dosage: 15 MG/M2, ONCE ON DAY 1
     Route: 042
  4. THYMOGLOBULIN [Concomitant]
     Indication: SURGICAL PRECONDITIONING
     Dosage: 0.5 MG/KG, ONCE
     Route: 042
  5. PLATELETS [Concomitant]
     Indication: PROPHYLAXIS
     Route: 042
  6. CIPROFLOXACIN [Concomitant]
     Indication: ANTIBIOTIC PROPHYLAXIS
     Dosage: 500 MG, BID
     Route: 065
  7. METHYLPREDNISOLONE [Concomitant]
     Indication: PREMEDICATION
     Dosage: 40 MG, BID
     Route: 042
  8. FLUDARA [Suspect]
     Indication: SURGICAL PRECONDITIONING
     Dosage: 50 MG/M2, QD ON DAYS -6 TO -2
     Route: 065
  9. RED BLOOD CELLS [Concomitant]
     Indication: ANAEMIA PROPHYLAXIS
     Route: 042
  10. TRIMETHOPRIM + SULFAMETHOXAZOLE [Concomitant]
     Indication: ANTIFUNGAL PROPHYLAXIS
     Dosage: UNK
     Route: 065
  11. FOLINIC ACID [Concomitant]
     Indication: PROPHYLAXIS AGAINST GRAFT VERSUS HOST DISEASE
     Dosage: 5 MG STARTED AFTER EACH MTX DOSE
     Route: 065
  12. THYMOGLOBULIN [Concomitant]
     Dosage: 2 MG/KG, QD
     Route: 042
  13. CYCLOSPORINE [Concomitant]
     Indication: PROPHYLAXIS AGAINST GRAFT VERSUS HOST DISEASE
     Route: 065
  14. BENADRYL [Concomitant]
     Indication: PREMEDICATION
     Dosage: 50 MG BEFORE EACH DOSE OF ATG
     Route: 042

REACTIONS (1)
  - GRAFT VERSUS HOST DISEASE [None]
